FAERS Safety Report 12508955 (Version 1)
Quarter: 2016Q2

REPORT INFORMATION
  Report Type: Spontaneous
  Country: US (occurrence: US)
  Receive Date: 20160629
  Receipt Date: 20160629
  Transmission Date: 20160815
  Serious: No
  Sender: FDA-Public Use
  Company Number: US-WATSON-2016-10220

PATIENT
  Sex: Female

DRUGS (2)
  1. ACITRETIN. [Suspect]
     Active Substance: ACITRETIN
     Indication: PITYRIASIS RUBRA PILARIS
     Dosage: UNK, DAILY
     Route: 065
     Dates: start: 201603
  2. ACITRETIN. [Suspect]
     Active Substance: ACITRETIN
     Dosage: UNK, QOD
     Route: 065

REACTIONS (2)
  - Dry mouth [Unknown]
  - Rash [Unknown]
